FAERS Safety Report 7650913-2 (Version None)
Quarter: 2011Q3

REPORT INFORMATION
  Report Type: 
  Country: None (occurrence: None)
  Receive Date: 20110727
  Receipt Date: 20110720
  Transmission Date: 20111222
  Serious: Yes (Other)
  Sender: FDA-Public Use
  Company Number: LEO-2011-00600

PATIENT
  Age: 54 Year
  Sex: Male

DRUGS (2)
  1. INNOHEP [Suspect]
     Indication: PROPHYLAXIS
     Dosage: 3500 IU, SUBCUTANEOUS
     Route: 058
  2. INNOHEP [Suspect]
     Indication: PROSTATECTOMY
     Dosage: 3500 IU, SUBCUTANEOUS
     Route: 058

REACTIONS (1)
  - PLATELET COUNT INCREASED [None]
